FAERS Safety Report 7953782-6 (Version None)
Quarter: 2011Q4

REPORT INFORMATION
  Report Type: 
  Country: None (occurrence: None)
  Receive Date: 20111202
  Receipt Date: 20111130
  Transmission Date: 20120403
  Serious: Yes (Hospitalization)
  Sender: FDA-Public Use
  Company Number: US-PFIZER INC-2011281714

PATIENT
  Sex: Female
  Weight: 58.9 kg

DRUGS (4)
  1. HEPARIN SODIUM [Suspect]
     Dosage: UNK
     Dates: start: 20100101
  2. ACETAMINOPHEN [Concomitant]
     Indication: OSTEOARTHRITIS
     Dosage: UNK
  3. PLAVIX [Concomitant]
     Dosage: UNK
  4. NAPROXEN (ALEVE) [Concomitant]
     Indication: OSTEOARTHRITIS
     Dosage: 2 DF DAILY

REACTIONS (2)
  - PRURITUS GENERALISED [None]
  - RASH GENERALISED [None]
